FAERS Safety Report 21424482 (Version 2)
Quarter: 2022Q4

REPORT INFORMATION
  Report Type: Spontaneous
  Country: US (occurrence: US)
  Receive Date: 20221007
  Receipt Date: 20221102
  Transmission Date: 20230113
  Serious: Yes (Other)
  Sender: FDA-Public Use
  Company Number: US-BRISTOL-MYERS SQUIBB COMPANY-2022-116341

PATIENT
  Age: 62 Year
  Sex: Female

DRUGS (2)
  1. REVLIMID [Suspect]
     Active Substance: LENALIDOMIDE
     Indication: Plasma cell myeloma
     Dosage: ONCE DAILY.
     Route: 048
     Dates: start: 20210204
  2. REVLIMID [Suspect]
     Active Substance: LENALIDOMIDE
     Dosage: ONCE DAILY.
     Route: 048
     Dates: start: 202209

REACTIONS (1)
  - Pneumonia [Unknown]
